FAERS Safety Report 15210550 (Version 1)
Quarter: 2018Q3

REPORT INFORMATION
  Report Type: Spontaneous
  Country: US (occurrence: US)
  Receive Date: 20180629
  Receipt Date: 20180629
  Transmission Date: 20181010
  Serious: No
  Sender: FDA-Public Use
  Company Number: None

PATIENT
  Age: 65 Year
  Sex: Female
  Weight: 58.5 kg

DRUGS (5)
  1. UCERIS [Concomitant]
     Active Substance: BUDESONIDE
  2. LIALDA [Concomitant]
     Active Substance: MESALAMINE
  3. MESALAMINE DR TABS 1.2 GM [Suspect]
     Active Substance: MESALAMINE
     Indication: COLITIS
     Dosage: ?          QUANTITY:2 TABLET(S);?
     Route: 048
     Dates: start: 20170901, end: 20171020
  4. CALCIUM [Concomitant]
     Active Substance: CALCIUM
  5. SUDAFED [Concomitant]
     Active Substance: PSEUDOEPHEDRINE HYDROCHLORIDE

REACTIONS (2)
  - Headache [None]
  - Product substitution issue [None]

NARRATIVE: CASE EVENT DATE: 20170901
